FAERS Safety Report 8489584-4 (Version None)
Quarter: 2012Q3

REPORT INFORMATION
  Report Type: 
  Country: None (occurrence: None)
  Receive Date: 20120705
  Receipt Date: 20120622
  Transmission Date: 20120928
  Serious: Yes (Death, Hospitalization, Other)
  Sender: FDA-Public Use
  Company Number: US-JNJFOC-20120516241

PATIENT
  Age: 24 Year
  Sex: Female

DRUGS (22)
  1. CARISOPRODOL [Concomitant]
     Route: 065
     Dates: start: 20070424
  2. REMICADE [Suspect]
     Route: 042
     Dates: start: 20061213
  3. ALPRAZOLAM [Concomitant]
     Route: 065
     Dates: start: 20070424
  4. UNKNOWN MEDICATION [Concomitant]
     Route: 065
     Dates: start: 20070424
  5. REMICADE [Suspect]
     Route: 042
     Dates: start: 20070309
  6. REMICADE [Suspect]
     Route: 042
     Dates: start: 20070112
  7. REMICADE [Suspect]
     Route: 042
     Dates: start: 20070829
  8. PREDNISONE [Concomitant]
     Indication: CROHN'S DISEASE
     Route: 065
     Dates: start: 20071011
  9. IBUPROFEN [Concomitant]
     Route: 065
     Dates: start: 20061128
  10. TOPAMAX [Concomitant]
     Route: 065
     Dates: start: 20070112
  11. PERCOCET [Concomitant]
     Route: 065
     Dates: start: 20061128
  12. RELPAX [Concomitant]
     Route: 065
     Dates: start: 20070309
  13. LEXAPRO [Concomitant]
     Route: 065
     Dates: start: 20061128
  14. REMICADE [Suspect]
     Route: 042
     Dates: start: 20061128
  15. REMICADE [Suspect]
     Route: 042
     Dates: start: 20070703
  16. ACETAMINOPHEN [Concomitant]
     Route: 065
     Dates: start: 20061128
  17. ULTRAM ER [Concomitant]
     Route: 065
     Dates: start: 20070112
  18. IMITREX [Concomitant]
     Route: 065
     Dates: start: 20070309
  19. BENADRYL [Concomitant]
     Route: 065
     Dates: start: 20070703
  20. REMICADE [Suspect]
     Indication: CROHN'S DISEASE
     Route: 042
     Dates: start: 20070424
  21. PREDNISONE [Concomitant]
     Route: 065
     Dates: start: 20061128
  22. PREDNISONE [Concomitant]
     Route: 065
     Dates: start: 20061130

REACTIONS (12)
  - CROHN'S DISEASE [None]
  - MIGRAINE [None]
  - ASCITES [None]
  - STAPHYLOCOCCAL INFECTION [None]
  - CHOLECYSTITIS [None]
  - HERPES ZOSTER [None]
  - VARICELLA [None]
  - PSORIASIS [None]
  - LUNG DISORDER [None]
  - SUICIDAL IDEATION [None]
  - BACK PAIN [None]
  - DECREASED APPETITE [None]
